FAERS Safety Report 17800413 (Version 2)
Quarter: 2020Q3

REPORT INFORMATION
  Report Type: Report from Study
  Country: US (occurrence: US)
  Receive Date: 20200519
  Receipt Date: 20200806
  Transmission Date: 20201102
  Serious: Yes (Hospitalization)
  Sender: FDA-Public Use
  Company Number: US-ROCHE-2600580

PATIENT
  Age: 65 Year
  Sex: Female
  Weight: 106 kg

DRUGS (4)
  1. 5?FLUOROURACIL [Suspect]
     Active Substance: FLUOROURACIL
     Indication: COLON CANCER STAGE III
     Dosage: ON 14/APR/2019, SHE RECEIVED THE LAST DOSE OF THE  5?FLUOROURACIL (5?FU)
     Route: 042
     Dates: start: 20181023, end: 20190414
  2. ATEZOLIZUMAB. [Suspect]
     Active Substance: ATEZOLIZUMAB
     Indication: COLON CANCER STAGE III
     Dosage: ON 13/AUG/2019 SHE RECEIVED THE LAST DOSE OF THE INTRAVENOUS ATEZOLIZUMAB
     Route: 042
     Dates: start: 20190813, end: 20190813
  3. LEUCOVORIN CALCIUM. [Suspect]
     Active Substance: LEUCOVORIN CALCIUM
     Indication: COLON CANCER STAGE III
     Dosage: ON 10/APR/2019, SHE RECEIVED THE LAST DOSE OF THE LEUCOVARIN CALCIUM.
     Route: 040
     Dates: start: 20181023, end: 20190410
  4. OXALIPLATIN. [Suspect]
     Active Substance: OXALIPLATIN
     Indication: COLON CANCER STAGE III
     Dosage: ON 10/APR/2019, SHE RECEIVED INTRAVENOUS OXALIPLATIN
     Route: 042
     Dates: start: 20181023, end: 20190410

REACTIONS (1)
  - Cholecystitis [Recovered/Resolved with Sequelae]

NARRATIVE: CASE EVENT DATE: 20190814
